FAERS Safety Report 12249162 (Version 1)
Quarter: 2016Q2

REPORT INFORMATION
  Report Type: Spontaneous
  Country: US (occurrence: None)
  Receive Date: 20160407
  Receipt Date: 20160407
  Transmission Date: 20160815
  Serious: No
  Sender: FDA-Public Use
  Company Number: None

PATIENT
  Age: 63 Year
  Sex: Female

DRUGS (1)
  1. ENBREL [Suspect]
     Active Substance: ETANERCEPT
     Indication: RHEUMATOID ARTHRITIS
     Route: 058
     Dates: start: 20160210, end: 20160323

REACTIONS (4)
  - Headache [None]
  - Condition aggravated [None]
  - Injection site erythema [None]
  - Systemic lupus erythematosus [None]

NARRATIVE: CASE EVENT DATE: 20160210
